FAERS Safety Report 18611982 (Version 1)
Quarter: 2020Q4

REPORT INFORMATION
  Report Type: Report from Study
  Country: None (occurrence: PR)
  Receive Date: 20201214
  Receipt Date: 20201214
  Transmission Date: 20210114
  Serious: Yes (Other)
  Sender: FDA-Public Use
  Company Number: PR-ABBVIE-20K-131-3687581-00

PATIENT
  Age: 13 Year
  Sex: Male
  Weight: 49.03 kg

DRUGS (2)
  1. HUMIRA [Suspect]
     Active Substance: ADALIMUMAB
     Indication: JUVENILE IDIOPATHIC ARTHRITIS
     Route: 058
     Dates: start: 20161107
  2. HUMIRA [Suspect]
     Active Substance: ADALIMUMAB
     Indication: JUVENILE IDIOPATHIC ARTHRITIS
     Route: 058

REACTIONS (3)
  - Blood urine present [Not Recovered/Not Resolved]
  - Rash [Not Recovered/Not Resolved]
  - Renal haemorrhage [Not Recovered/Not Resolved]

NARRATIVE: CASE EVENT DATE: 202010
